FAERS Safety Report 6877999-7 (Version None)
Quarter: 2010Q3

REPORT INFORMATION
  Report Type: 
  Country: None (occurrence: None)
  Receive Date: 20100727
  Receipt Date: 20100722
  Transmission Date: 20110219
  Serious: Yes (Hospitalization, Other)
  Sender: FDA-Public Use
  Company Number: US-ROXANE LABORATORIES, INC.-2010-RO-00900RO

PATIENT
  Age: 22 Year
  Sex: Male

DRUGS (1)
  1. METHADONE HCL [Suspect]

REACTIONS (5)
  - ACCIDENTAL OVERDOSE [None]
  - BRACHIAL PLEXOPATHY [None]
  - CONTUSION [None]
  - HORNER'S SYNDROME [None]
  - JOINT HYPEREXTENSION [None]
